FAERS Safety Report 4691672-5 (Version None)
Quarter: 2005Q2

REPORT INFORMATION
  Report Type: 
  Country: None (occurrence: None)
  Receive Date: 20050616
  Receipt Date: 20050606
  Transmission Date: 20051028
  Serious: Yes (Other)
  Sender: FDA-Public Use
  Company Number: JP-JNJFOC-20050602820

PATIENT
  Age: 70 Year
  Sex: Male

DRUGS (4)
  1. LEVOFLOXACIN [Suspect]
  2. LEVOFLOXACIN [Suspect]
     Indication: PNEUMONIA
  3. ASPIRIN [Concomitant]
     Indication: CEREBRAL INFARCTION
  4. PAROXETINE HCL [Concomitant]

REACTIONS (1)
  - ACUTE GENERALISED EXANTHEMATOUS PUSTULOSIS [None]
